FAERS Safety Report 20091951 (Version 1)
Quarter: 2021Q4

REPORT INFORMATION
  Report Type: Spontaneous
  Country: AT (occurrence: AT)
  Receive Date: 20211119
  Receipt Date: 20211119
  Transmission Date: 20220303
  Serious: Yes (Other)
  Sender: FDA-Public Use
  Company Number: AT-Accord-234570

PATIENT
  Age: 74 Year
  Sex: Male

DRUGS (6)
  1. BORTEZOMIB [Suspect]
     Active Substance: BORTEZOMIB
     Indication: Light chain disease
     Dosage: UNK (DISCONTINUED AFTER 5 CYCLES)
     Route: 065
     Dates: start: 201604, end: 201607
  2. DEXAMETHASONE [Suspect]
     Active Substance: DEXAMETHASONE
     Indication: Light chain disease
     Dosage: UNK (DISCONTINUED AFTER 5 CYCLES (BORTEZOMIB/DEXAMETHASONE)
     Route: 065
     Dates: start: 201604, end: 201607
  3. DEXAMETHASONE [Suspect]
     Active Substance: DEXAMETHASONE
     Dosage: DISCONTINUED AFTER 12 CYCLES (LENALIDOMIDE/DEXAMETHASONE)
     Route: 065
     Dates: end: 201707
  4. LENALIDOMIDE [Suspect]
     Active Substance: LENALIDOMIDE
     Indication: Light chain disease
     Dosage: UNK (12 CYCLES)
     Route: 065
     Dates: end: 201706
  5. ZOLEDRONIC ACID [Concomitant]
     Active Substance: ZOLEDRONIC ACID
     Indication: Product used for unknown indication
     Dosage: UNK
     Dates: start: 200609
  6. ZOLEDRONIC ACID [Concomitant]
     Active Substance: ZOLEDRONIC ACID
     Dosage: RESTARTED
     Dates: start: 2015

REACTIONS (2)
  - Polyneuropathy [Unknown]
  - Adverse event [Unknown]

NARRATIVE: CASE EVENT DATE: 20160101
